FAERS Safety Report 4616038-5 (Version None)
Quarter: 2005Q1

REPORT INFORMATION
  Report Type: 
  Country: None (occurrence: None)
  Receive Date: 20050321
  Receipt Date: 20050308
  Transmission Date: 20050727
  Serious: No
  Sender: FDA-Public Use
  Company Number: 2005-BP-03678RO

PATIENT
  Sex: Female

DRUGS (1)
  1. METHADONE (METHADONE) [Suspect]
     Indication: DRUG WITHDRAWAL MAINTENANCE THERAPY
     Dosage: PO
     Route: 048

REACTIONS (8)
  - BLOOD IMMUNOGLOBULIN G INCREASED [None]
  - EXANTHEM [None]
  - HAEMOGLOBIN DECREASED [None]
  - PURPURA [None]
  - RASH ERYTHEMATOUS [None]
  - RASH PRURITIC [None]
  - RED BLOOD CELL SEDIMENTATION RATE INCREASED [None]
  - SKIN EXFOLIATION [None]
